FAERS Safety Report 17933854 (Version 1)
Quarter: 2020Q2

REPORT INFORMATION
  Report Type: Spontaneous
  Country: ES (occurrence: ES)
  Receive Date: 20200624
  Receipt Date: 20200624
  Transmission Date: 20200714
  Serious: Yes (Hospitalization)
  Sender: FDA-Public Use
  Company Number: ES-TEVA-2020-ES-1789649

PATIENT
  Age: 69 Year
  Sex: Male

DRUGS (8)
  1. RAMIPRIL (2497A) [Concomitant]
     Active Substance: RAMIPRIL
     Dosage: 2.5 MG
     Route: 048
  2. PANTOPRAZOL NORMON 40 MG COMPRIMIDOS GASTRORRESISTENTES EFG, 28 COMPRI [Concomitant]
     Dosage: 20 MG
     Route: 048
  3. PREDNISONA CINFA 30 MG COMPRIMIDOS EFG, 30 COMPRIMIDOS [Concomitant]
     Active Substance: PREDNISONE
     Dosage: 30 MG
     Route: 048
  4. CLOPIDOGREL TEVA 75 MG COMPRIMIDOS RECUBIERTOS CON PELICULA EFG, 28 CO [Concomitant]
     Dosage: 75 MG
     Route: 048
  5. ATORVASTATINA (7400A) [Suspect]
     Active Substance: ATORVASTATIN
     Dosage: 40 MG
     Route: 048
     Dates: start: 20200228, end: 20200425
  6. ESPIRONOLACTONA (326A) [Concomitant]
     Active Substance: SPIRONOLACTONE
     Dosage: 25 MG
     Route: 048
  7. OSVICAL D 600 MG/400 UI GRANULADO EFERVESCENTE , 60 SOBRES [Concomitant]
     Dosage: 1 DOSAGE FORMS
     Route: 048
  8. FUROSEMIDA KERN PHARMA 40 MG COMPRIMIDOS EFG, 30 COMPRIMIDOS [Concomitant]
     Dosage: 40 MG
     Route: 048

REACTIONS (1)
  - Hypertransaminasaemia [Recovering/Resolving]

NARRATIVE: CASE EVENT DATE: 20200421
